FAERS Safety Report 6290362-5 (Version None)
Quarter: 2009Q3

REPORT INFORMATION
  Report Type: 
  Country: None (occurrence: None)
  Receive Date: 20090730
  Receipt Date: 20090312
  Transmission Date: 20100115
  Serious: No
  Sender: FDA-Public Use
  Company Number: US-BRISTOL-MYERS SQUIBB COMPANY-14542146

PATIENT
  Age: 58 Year
  Sex: Female
  Weight: 60 kg

DRUGS (3)
  1. COUMADIN [Suspect]
     Dosage: 1DF-6MG FOR 4 DAYS AND 5MG FOR 3 DAYS AND DOSE WAS CHANGED TO 6MG FOR 5 DAYS AND 5MG FOR 2 DAYS.
     Dates: start: 20080601
  2. WARFARIN SODIUM [Suspect]
  3. VITAMINS [Concomitant]

REACTIONS (1)
  - INTERNATIONAL NORMALISED RATIO FLUCTUATION [None]
